FAERS Safety Report 17422764 (Version 3)
Quarter: 2020Q3

REPORT INFORMATION
  Report Type: Not Available
  Country: US (occurrence: US)
  Receive Date: 20200215
  Receipt Date: 20200703
  Transmission Date: 20201102
  Serious: Yes (Hospitalization, Other)
  Sender: FDA-Public Use
  Company Number: US-VISTAPHARM, INC.-VER202002-000303

PATIENT
  Age: 14 Year
  Sex: Male

DRUGS (1)
  1. METHADONE [Suspect]
     Active Substance: METHADONE HYDROCHLORIDE
     Indication: PRODUCT USED FOR UNKNOWN INDICATION
     Dosage: UNKNOWN

REACTIONS (9)
  - Encephalitis [Recovering/Resolving]
  - Atelectasis [Recovering/Resolving]
  - Unresponsive to stimuli [Recovered/Resolved]
  - Liver injury [Recovering/Resolving]
  - Encephalopathy [Recovering/Resolving]
  - Ventricular hypertrophy [Recovering/Resolving]
  - Renal injury [Recovering/Resolving]
  - Overdose [Unknown]
  - Toxicity to various agents [Recovering/Resolving]
